FAERS Safety Report 20157252 (Version 1)
Quarter: 2021Q4

REPORT INFORMATION
  Report Type: Spontaneous
  Country: CA (occurrence: CA)
  Receive Date: 20211207
  Receipt Date: 20211207
  Transmission Date: 20220303
  Serious: Yes (Other)
  Sender: FDA-Public Use
  Company Number: CA-PFIZER INC-202101682090

PATIENT
  Age: 60 Year
  Sex: Male
  Weight: 80 kg

DRUGS (1)
  1. CELEBREX [Suspect]
     Active Substance: CELECOXIB
     Dosage: 200 MG, 1X/DAY
     Route: 065

REACTIONS (7)
  - Uveitis [Unknown]
  - Drug ineffective [Unknown]
  - Coronary artery disease [Unknown]
  - Hypertension [Unknown]
  - Psoriasis [Unknown]
  - Sacroiliitis [Unknown]
  - Spinal pain [Unknown]
